FAERS Safety Report 5682252-3 (Version None)
Quarter: 2008Q1

REPORT INFORMATION
  Report Type: 
  Country: None (occurrence: None)
  Receive Date: 20080326
  Receipt Date: 20080326
  Transmission Date: 20080703
  Serious: No
  Sender: FDA-Public Use
  Company Number: None

PATIENT
  Age: 70 Year
  Sex: Male
  Weight: 72.5755 kg

DRUGS (2)
  1. PYRIDOXINE HCL [Suspect]
     Dosage: 1 TABLET ONCE DAILY PO
     Route: 048
  2. MENTAX [Suspect]
     Dosage: SMALL AMOUNT ONCE DAILY TOP NEVER
     Route: 061

REACTIONS (2)
  - INTERCEPTED DRUG ADMINISTRATION ERROR [None]
  - MEDICATION ERROR [None]
